FAERS Safety Report 18765526 (Version 1)
Quarter: 2021Q1

REPORT INFORMATION
  Report Type: Spontaneous
  Country: US (occurrence: US)
  Receive Date: 20210120
  Receipt Date: 20210120
  Transmission Date: 20210419
  Serious: Yes (Other)
  Sender: FDA-Public Use
  Company Number: US-ELI_LILLY_AND_COMPANY-US202101006712

PATIENT
  Sex: Female

DRUGS (1)
  1. INSULIN LISPRO LILLY [Suspect]
     Active Substance: INSULIN LISPRO
     Indication: TYPE 2 DIABETES MELLITUS
     Dosage: 16?32 U, PRN DAILY
     Route: 065
     Dates: start: 202012

REACTIONS (1)
  - Coronary artery disease [Recovering/Resolving]
